FAERS Safety Report 9135946 (Version 1)
Quarter: 2013Q1

REPORT INFORMATION
  Report Type: Spontaneous
  Country: US (occurrence: US)
  Receive Date: 20130219
  Receipt Date: 20130219
  Transmission Date: 20140127
  Serious: No
  Sender: FDA-Public Use
  Company Number: US-BRISTOL-MYERS SQUIBB COMPANY-16467086

PATIENT
  Sex: 0

DRUGS (1)
  1. ORENCIA FOR INJ 250 MG/VIAL [Suspect]
     Dosage: 1K70615, 1K70605?LAST INF:COUPLE OF MONTHS?INF:1 OR 2
     Route: 042

REACTIONS (1)
  - Infusion related reaction [Recovering/Resolving]
